FAERS Safety Report 4922523-9 (Version None)
Quarter: 2006Q1

REPORT INFORMATION
  Report Type: 
  Country: None (occurrence: None)
  Receive Date: 20060224
  Receipt Date: 20060118
  Transmission Date: 20060701
  Serious: Yes (Other)
  Sender: FDA-Public Use
  Company Number: JP-ROCHE-433062

PATIENT
  Age: 6 Year
  Sex: Male
  Weight: 15 kg

DRUGS (6)
  1. TAMIFLU [Suspect]
     Route: 048
     Dates: start: 20060108, end: 20060112
  2. TOMIRON [Concomitant]
     Dosage: ORAL FORMULATION (NOT OTHERWISE SPECIFIED).
     Route: 048
  3. ASVERIN [Concomitant]
     Dosage: ORAL FORMULATION (NOT OTHERWISE SPECIFIED).
     Route: 048
  4. PERIACTIN [Concomitant]
     Dosage: ORAL FORMULATION (NOT OTHERWISE SPECIFIED).
     Route: 048
  5. MUCODYNE [Concomitant]
     Dosage: ORAL FORMULATION (NOT OTHERWISE SPECIFIED).
     Route: 048
  6. ENTERONON-R [Concomitant]
     Route: 048

REACTIONS (11)
  - AGGRESSION [None]
  - EXCITABILITY [None]
  - FEAR [None]
  - HAEMOGLOBIN DECREASED [None]
  - HALLUCINATION [None]
  - ORAL INTAKE REDUCED [None]
  - PLATELET COUNT DECREASED [None]
  - PROTEIN TOTAL DECREASED [None]
  - RESTLESSNESS [None]
  - SOMNOLENCE [None]
  - URINE KETONE BODY PRESENT [None]
